FAERS Safety Report 4337776-8 (Version None)
Quarter: 2004Q2

REPORT INFORMATION
  Report Type: 
  Country: None (occurrence: None)
  Receive Date: 20040408
  Receipt Date: 20040401
  Transmission Date: 20050107
  Serious: Yes (Death)
  Sender: FDA-Public Use
  Company Number: 2004PK00297

PATIENT
  Age: 74 Year
  Sex: Female

DRUGS (11)
  1. ROSUVASTATIN [Suspect]
     Indication: RENAL FAILURE CHRONIC
     Dosage: 10 MG DAILY PO
     Route: 048
     Dates: start: 20021018, end: 20040107
  2. ROSUVASTATIN [Suspect]
     Indication: RENAL FAILURE CHRONIC
     Dosage: 10 MG DAILY PO
     Route: 048
     Dates: start: 20040204
  3. THYROID TAB [Concomitant]
  4. CALCIUM [Concomitant]
  5. TENORMIN [Concomitant]
  6. TRUXAL [Concomitant]
  7. INFLEXAL [Concomitant]
  8. LEXOTANIL [Concomitant]
  9. ENGERIX-B [Concomitant]
  10. ASPEGIC 325 [Concomitant]
  11. NORVASC [Concomitant]

REACTIONS (4)
  - CARDIAC DEATH [None]
  - CARDIAC FAILURE [None]
  - CIRCULATORY COLLAPSE [None]
  - VERTIGO [None]
